FAERS Safety Report 9450614 (Version 1)
Quarter: 2013Q3

REPORT INFORMATION
  Report Type: Spontaneous
  Country: US (occurrence: US)
  Receive Date: 20130809
  Receipt Date: 20130809
  Transmission Date: 20140515
  Serious: No
  Sender: FDA-Public Use
  Company Number: US-009507513-1308USA003515

PATIENT
  Sex: Female

DRUGS (2)
  1. MONTELUKAST SODIUM [Suspect]
     Route: 048
  2. SINGULAIR [Suspect]
     Route: 048

REACTIONS (5)
  - Dyspnoea [Unknown]
  - Drug ineffective [Unknown]
  - Cough [Unknown]
  - Nasal congestion [Unknown]
  - Increased upper airway secretion [Unknown]
